FAERS Safety Report 17072463 (Version 1)
Quarter: 2019Q4

REPORT INFORMATION
  Report Type: Spontaneous
  Country: US (occurrence: US)
  Receive Date: 20191124
  Receipt Date: 20191124
  Transmission Date: 20200122
  Serious: No
  Sender: FDA-Public Use
  Company Number: None

PATIENT
  Age: 53 Year
  Sex: Female
  Weight: 70.2 kg

DRUGS (1)
  1. UP AND UP MUCUS RELIEF DM [Suspect]
     Active Substance: DEXTROMETHORPHAN HYDROBROMIDE\GUAIFENESIN
     Indication: BRONCHITIS
     Dosage: ?          OTHER STRENGTH:600MG/30MG;QUANTITY:20 TABLET(S);?
     Route: 048
     Dates: start: 20191123, end: 20191124

REACTIONS (3)
  - Vaginal haemorrhage [None]
  - Pollakiuria [None]
  - Dry mouth [None]

NARRATIVE: CASE EVENT DATE: 20191124
